FAERS Safety Report 9265574 (Version 1)
Quarter: 2013Q2

REPORT INFORMATION
  Report Type: Other
  Country: DE (occurrence: DE)
  Receive Date: 20130501
  Receipt Date: 20130501
  Transmission Date: 20140414
  Serious: Yes (Hospitalization)
  Sender: FDA-Public Use
  Company Number: DE-WATSON-2013-07177

PATIENT
  Age: 60 Year
  Sex: Female

DRUGS (7)
  1. CITALOPRAM HYDROBROMIDE (UNKNOWN) [Suspect]
     Indication: PRODUCT USED FOR UNKNOWN INDICATION
     Dosage: 10 MG, DAILY
     Route: 048
     Dates: start: 20121023, end: 20121024
  2. CITALOPRAM HYDROBROMIDE (UNKNOWN) [Suspect]
     Dosage: 20 MG, DAILY
     Route: 048
     Dates: start: 20120928, end: 20121022
  3. CITALOPRAM HYDROBROMIDE (UNKNOWN) [Suspect]
     Dosage: 30 MG, DAILY
     Route: 048
     Dates: start: 20120920, end: 20120927
  4. CITALOPRAM HYDROBROMIDE (UNKNOWN) [Suspect]
     Dosage: 20 MG, DAILY
     Route: 048
     Dates: start: 20120814, end: 20120919
  5. MIRTAZAPIN [Concomitant]
     Indication: PRODUCT USED FOR UNKNOWN INDICATION
     Dosage: 15 MG, DAILY
     Route: 048
     Dates: start: 20120831, end: 20121026
  6. MIRTAZAPIN [Concomitant]
     Dosage: 7.5 MG, DAILY
     Route: 048
     Dates: start: 20120828, end: 20120830
  7. L-THYROXIN 1A PHARMA [Concomitant]
     Indication: PRODUCT USED FOR UNKNOWN INDICATION
     Dosage: 112.5 MCG, DAILY
     Route: 065

REACTIONS (5)
  - Suicidal ideation [Recovered/Resolved]
  - Restlessness [Recovered/Resolved]
  - Agitation [Recovered/Resolved]
  - Anxiety [Recovered/Resolved]
  - Palpitations [Recovered/Resolved]
